FAERS Safety Report 6714912-7 (Version None)
Quarter: 2010Q2

REPORT INFORMATION
  Report Type: 
  Country: None (occurrence: None)
  Receive Date: 20100506
  Receipt Date: 20100506
  Transmission Date: 20101027
  Serious: Yes (Hospitalization)
  Sender: FDA-Public Use
  Company Number: None

PATIENT
  Age: 14 Month
  Sex: Female
  Weight: 9.5255 kg

DRUGS (1)
  1. CHILDREN'S TYLENOL CHERRY BLAST  80MG PER 1/2 TSP MCNEIL [Suspect]
     Indication: PAIN
     Dosage: 1/2-3/4 OF A TEASPOON EVERY 4 HOURS PO
     Route: 048
     Dates: start: 20100415, end: 20100417

REACTIONS (5)
  - CRYING [None]
  - JOINT ABSCESS [None]
  - JOINT SWELLING [None]
  - LABORATORY TEST ABNORMAL [None]
  - PRODUCT QUALITY ISSUE [None]
